FAERS Safety Report 8778150 (Version 1)
Quarter: 2012Q4

REPORT INFORMATION
  Report Type: 
  Country: BR (occurrence: BR)
  Receive Date: 20120912
  Receipt Date: 20120912
  Transmission Date: 20130627
  Serious: Yes (Hospitalization)
  Sender: FDA-Public Use
  Company Number: BR-UCBSA-065369

PATIENT
  Age: 83 Year
  Sex: Male

DRUGS (5)
  1. ISOSORBIDE MONONITRATE [Suspect]
     Indication: ANGINA PECTORIS
     Dosage: DAILY DOSE-40 MG
     Route: 048
     Dates: start: 20120822
  2. BLINDED TRIAL MEDICATION [Suspect]
     Indication: ACUTE CORONARY SYNDROME
     Route: 048
     Dates: start: 20110816
  3. HEPARIN [Suspect]
     Indication: THROMBOSIS PROPHYLAXIS
     Dosage: DAILY DOSE-1 ML
     Route: 058
     Dates: start: 20120822, end: 20120822
  4. RANITIDINE HYDROCHLORIDE [Suspect]
     Indication: GASTRITIS PROPHYLAXIS
     Dosage: DAILY DOSE-150 MG
     Route: 048
     Dates: start: 20120822, end: 20120822
  5. HYDRALAZINE [Suspect]
     Indication: HYPERTENSION
     Dosage: DAILY DOSE-50 MG
     Route: 048
     Dates: start: 20120822

REACTIONS (1)
  - Renal failure acute [Recovering/Resolving]
